FAERS Safety Report 10795179 (Version 1)
Quarter: 2015Q1

REPORT INFORMATION
  Report Type: Spontaneous
  Country: US (occurrence: US)
  Receive Date: 20150214
  Receipt Date: 20150214
  Transmission Date: 20150721
  Serious: No
  Sender: FDA-Public Use
  Company Number: US-GLAXOSMITHKLINE-A1073675A

PATIENT

DRUGS (5)
  1. UNKNOWN FOR ANXIETY [Concomitant]
  2. ANTIDEPRESSANTS [Concomitant]
     Active Substance: UNSPECIFIED INGREDIENT
  3. FLOVENT [Suspect]
     Active Substance: FLUTICASONE PROPIONATE
     Indication: ASTHMA
     Dosage: INH 44MCG
     Route: 055
     Dates: start: 200305, end: 200410
  4. LIPITOR [Concomitant]
     Active Substance: ATORVASTATIN CALCIUM
  5. PREVACID [Concomitant]
     Active Substance: LANSOPRAZOLE

REACTIONS (6)
  - Face oedema [Unknown]
  - Cough [Unknown]
  - Throat irritation [Unknown]
  - Rash pruritic [Unknown]
  - Hypersensitivity [Unknown]
  - Pruritus [Unknown]

NARRATIVE: CASE EVENT DATE: 2003
